FAERS Safety Report 8667464 (Version 2)
Quarter: 2013Q4

REPORT INFORMATION
  Report Type: Spontaneous
  Country: TR (occurrence: TR)
  Receive Date: 20120717
  Receipt Date: 20131105
  Transmission Date: 20140711
  Serious: Yes (Hospitalization)
  Sender: FDA-Public Use
  Company Number: TR-009507513-1207TUR001421

PATIENT
  Age: 36 Year
  Sex: Male

DRUGS (1)
  1. FOSAVANCE TABLET [Suspect]
     Indication: OSTEOPOROSIS
     Dosage: 70 MG / 2800 IU
     Route: 048

REACTIONS (1)
  - Nephrotic syndrome [Recovered/Resolved]
